FAERS Safety Report 9402752 (Version 2)
Quarter: 2013Q3

REPORT INFORMATION
  Report Type: Spontaneous
  Country: US (occurrence: US)
  Receive Date: 20130716
  Receipt Date: 20130828
  Transmission Date: 20140515
  Serious: Yes (Congenital Anomaly, Other)
  Sender: FDA-Public Use
  Company Number: US-PFIZER INC-2013205866

PATIENT
  Sex: Male

DRUGS (20)
  1. ZOLOFT [Suspect]
     Indication: DEPRESSION
     Dosage: UNK
     Route: 064
     Dates: start: 1997, end: 2002
  2. BENZONATATE [Concomitant]
     Dosage: UNK
  3. ERYTHROMYCIN [Concomitant]
     Dosage: UNK
  4. ZITHROMAX [Concomitant]
     Dosage: UNK
  5. CLEOCIN [Concomitant]
     Dosage: UNK
  6. ALLEGRA [Concomitant]
     Dosage: UNK
  7. GUAIFEN [Concomitant]
     Dosage: UNK
  8. IMITREX [Concomitant]
     Dosage: UNK
  9. PRENATAL VITAMINS [Concomitant]
     Dosage: UNK
  10. TRIAMCINOLONE [Concomitant]
     Dosage: UNK
  11. SULFAMETHOXAZOLE [Concomitant]
     Dosage: UNK
  12. METROGEL [Concomitant]
     Dosage: UNK
  13. CEPHALEXIN [Concomitant]
     Dosage: UNK
  14. ORTHO CYCLEN [Concomitant]
     Dosage: UNK
  15. ZOVIA [Concomitant]
     Dosage: UNK
  16. FLONASE [Concomitant]
     Dosage: UNK
  17. IBUPROFEN [Concomitant]
     Dosage: UNK
  18. METRONIDAZOLE [Concomitant]
     Dosage: UNK
  19. HYDROCORTISONE [Concomitant]
     Dosage: UNK
  20. VITAMIN C [Concomitant]
     Dosage: UNK

REACTIONS (4)
  - Maternal exposure during pregnancy [Unknown]
  - Exomphalos [Unknown]
  - Supraventricular tachycardia [Unknown]
  - Supraventricular tachycardia [Unknown]
